FAERS Safety Report 7743174-7 (Version None)
Quarter: 2011Q3

REPORT INFORMATION
  Report Type: 
  Country: None (occurrence: None)
  Receive Date: 20110912
  Receipt Date: 20110831
  Transmission Date: 20111222
  Serious: Yes (Other)
  Sender: FDA-Public Use
  Company Number: US-BAYER-2011-017600

PATIENT
  Age: 21 Year
  Sex: Female
  Weight: 72.562 kg

DRUGS (6)
  1. DROSPIRENONE AND ETHINYL ESTRADIOL [Suspect]
     Dosage: UNK
     Dates: start: 20100101, end: 20100201
  2. YASMIN [Suspect]
     Dosage: UNK
     Dates: start: 20090101, end: 20100601
  3. DROSPIRENONE AND ETHINYL ESTRADIOL [Suspect]
     Indication: MENOMETRORRHAGIA
     Dosage: UNK
     Dates: start: 20081201, end: 20090101
  4. DROSPIRENONE AND ETHINYL ESTRADIOL [Suspect]
     Dosage: UNK
     Dates: start: 20100601, end: 20100701
  5. YASMIN [Suspect]
     Dosage: UNK
     Dates: start: 20080701, end: 20081101
  6. YASMIN [Suspect]
     Indication: MENOMETRORRHAGIA
     Dosage: UNK
     Dates: start: 20031201, end: 20061001

REACTIONS (5)
  - INJURY [None]
  - PAIN [None]
  - CHOLECYSTITIS CHRONIC [None]
  - GALLBLADDER DISORDER [None]
  - GASTROINTESTINAL DISORDER [None]
